FAERS Safety Report 8583324-6 (Version None)
Quarter: 2012Q3

REPORT INFORMATION
  Report Type: 
  Country: None (occurrence: None)
  Receive Date: 20120809
  Receipt Date: 20120802
  Transmission Date: 20120928
  Serious: Yes (Other)
  Sender: FDA-Public Use
  Company Number: US-MYLANLABS-2012S1015865

PATIENT
  Sex: Male

DRUGS (2)
  1. METOPROLOL SUCCINATE [Suspect]
     Indication: AORTIC ANEURYSM
     Route: 048
     Dates: start: 20120304, end: 20120327
  2. METOPROLOL SUCCINATE [Suspect]
     Route: 048
     Dates: start: 20120328, end: 20120402

REACTIONS (2)
  - CEREBROVASCULAR ACCIDENT [None]
  - BRADYCARDIA [None]
